FAERS Safety Report 5856517-6 (Version None)
Quarter: 2008Q3

REPORT INFORMATION
  Report Type: 
  Country: None (occurrence: None)
  Receive Date: 20080821
  Receipt Date: 20080808
  Transmission Date: 20090109
  Serious: Yes (Hospitalization)
  Sender: FDA-Public Use
  Company Number: 1000000540

PATIENT
  Age: 78 Year
  Sex: Male

DRUGS (4)
  1. ESCITALOPRAM OXALATE [Suspect]
     Indication: DEPRESSION
     Dosage: 10 MG (10 MG, 1 IN 1 D),ORAL
     Route: 048
     Dates: start: 20080701, end: 20080711
  2. PRETERAX (1 DOSAGE FORMS) [Suspect]
     Indication: HYPERTENSION
     Dosage: 1 DOSAGE FORMS (1 DOSAGE FORMS, 1 IN 1 D), ORAL
     Route: 048
     Dates: start: 19980101, end: 20080711
  3. LEXOMIL (3 MILLIGRAM) [Suspect]
     Indication: INSOMNIA
     Dosage: 3 MG (3 MG, 1 IN 1 D), ORAL
     Route: 048
     Dates: start: 20070301, end: 20080711
  4. ZOCOR [Suspect]
     Indication: HYPERCHOLESTEROLAEMIA
     Dosage: 20 MG (20 MG, 1 IN 1 D),ORAL
     Route: 048
     Dates: end: 20080711

REACTIONS (4)
  - ASTHENIA [None]
  - CONDITION AGGRAVATED [None]
  - HYPONATRAEMIA [None]
  - WEIGHT DECREASED [None]
